FAERS Safety Report 4356501-8 (Version None)
Quarter: 2004Q2

REPORT INFORMATION
  Report Type: 
  Country: None (occurrence: None)
  Receive Date: 20040506
  Receipt Date: 20040426
  Transmission Date: 20050107
  Serious: Yes (Disabling, Other)
  Sender: FDA-Public Use
  Company Number: 2004210955GB

PATIENT
  Age: 60 Year
  Sex: Male
  Weight: 87.8 kg

DRUGS (4)
  1. CABERGOLINE [Suspect]
     Indication: PARKINSON'S DISEASE
     Dosage: 2 MG, BID, ORAL
     Route: 048
     Dates: start: 19971001
  2. SINEMET [Concomitant]
  3. AMANTADINE HCL [Concomitant]
  4. APOMORPHINE (APOMORPHINE) [Concomitant]

REACTIONS (2)
  - PLEURAL EFFUSION [None]
  - PLEURAL FIBROSIS [None]
